FAERS Safety Report 8136649-2 (Version None)
Quarter: 2012Q1

REPORT INFORMATION
  Report Type: 
  Country: None (occurrence: None)
  Receive Date: 20120214
  Receipt Date: 20120207
  Transmission Date: 20120608
  Serious: Yes (Other)
  Sender: FDA-Public Use
  Company Number: US-ROCHE-794461

PATIENT
  Sex: Female
  Weight: 52.21 kg

DRUGS (1)
  1. ACCUTANE [Suspect]
     Indication: ACNE
     Route: 048
     Dates: start: 20040127, end: 20050421

REACTIONS (5)
  - POST-TRAUMATIC STRESS DISORDER [None]
  - BLOOD TRIGLYCERIDES INCREASED [None]
  - INFLAMMATORY BOWEL DISEASE [None]
  - DEPRESSION [None]
  - IRRITABLE BOWEL SYNDROME [None]
